FAERS Safety Report 5441257-8 (Version None)
Quarter: 2007Q3

REPORT INFORMATION
  Report Type: 
  Country: None (occurrence: None)
  Receive Date: 20070901
  Receipt Date: 20070824
  Transmission Date: 20080115
  Serious: Yes (Other)
  Sender: FDA-Public Use
  Company Number: JP-PFIZER INC-2007071086

PATIENT
  Sex: Male

DRUGS (7)
  1. LIPITOR [Suspect]
     Indication: HYPERCHOLESTEROLAEMIA
     Dosage: DAILY DOSE:10MG
     Route: 048
  2. FAMOTIDINE [Concomitant]
  3. BUFFERIN [Concomitant]
  4. MIGLITOL [Concomitant]
  5. GASMOTIN [Concomitant]
  6. KAKKON-TO [Concomitant]
  7. WARFARIN [Concomitant]

REACTIONS (4)
  - BLOOD CREATININE INCREASED [None]
  - BLOOD UREA INCREASED [None]
  - DEHYDRATION [None]
  - RHABDOMYOLYSIS [None]
